FAERS Safety Report 5263704-7 (Version None)
Quarter: 2007Q1

REPORT INFORMATION
  Report Type: 
  Country: None (occurrence: None)
  Receive Date: 20070312
  Receipt Date: 20070312
  Transmission Date: 20070707
  Serious: Yes (Death, Life-Threatening, Hospitalization, Disabling)
  Sender: FDA-Public Use
  Company Number: None

PATIENT
  Age: 43 Year
  Sex: Female
  Weight: 54.4316 kg

DRUGS (5)
  1. DURAGESIC-50 [Suspect]
     Indication: ABDOMINAL PAIN UPPER
     Dosage: PATCH SEE INSTRUCTIONS TRANSDERMAL
     Route: 062
  2. DURAGESIC-50 [Suspect]
     Indication: GASTROINTESTINAL DISORDER
     Dosage: PATCH SEE INSTRUCTIONS TRANSDERMAL
     Route: 062
  3. ACTIQ [Suspect]
     Indication: ABDOMINAL PAIN UPPER
     Dosage: 600 - 800MCG ALL DAY
  4. ACTIQ [Suspect]
     Indication: GASTROINTESTINAL DISORDER
     Dosage: 600 - 800MCG ALL DAY
  5. ACTIQ [Suspect]
     Indication: OFF LABEL USE
     Dosage: 600 - 800MCG ALL DAY

REACTIONS (11)
  - ABDOMINAL DISCOMFORT [None]
  - CARDIAC FAILURE CONGESTIVE [None]
  - CONSTIPATION [None]
  - DRUG EXPOSURE BEFORE PREGNANCY [None]
  - DRUG EXPOSURE DURING PREGNANCY [None]
  - GASTROINTESTINAL MOTILITY DISORDER [None]
  - HYPERTENSION [None]
  - INFARCTION [None]
  - INTRA-UTERINE DEATH [None]
  - SWELLING [None]
  - TWIN PREGNANCY [None]
